FAERS Safety Report 5117773-5 (Version None)
Quarter: 2006Q3

REPORT INFORMATION
  Report Type: 
  Country: None (occurrence: None)
  Receive Date: 20060929
  Receipt Date: 20060926
  Transmission Date: 20061208
  Serious: Yes (Life-Threatening)
  Sender: FDA-Public Use
  Company Number: GB-GLAXOSMITHKLINE-B0440266A

PATIENT
  Age: 67 Year
  Sex: Female
  Weight: 55 kg

DRUGS (5)
  1. PAROXETINE HCL [Suspect]
     Indication: DEPRESSION
     Dosage: 20MG PER DAY
     Route: 048
     Dates: start: 20060829, end: 20060831
  2. CODEIN [Concomitant]
  3. PARACETAMOL [Concomitant]
  4. ALBUTEROL SPIROS [Concomitant]
  5. TRIMETHOPRIM [Concomitant]
     Dosage: 200MG PER DAY
     Route: 048
     Dates: start: 20060829, end: 20060901

REACTIONS (4)
  - AGITATION [None]
  - DEPRESSION [None]
  - NAUSEA [None]
  - SUICIDAL IDEATION [None]
